FAERS Safety Report 10216696 (Version 1)
Quarter: 2014Q2

REPORT INFORMATION
  Report Type: Spontaneous
  Country: US (occurrence: US)
  Receive Date: 20140604
  Receipt Date: 20140604
  Transmission Date: 20141212
  Serious: No
  Sender: FDA-Public Use
  Company Number: US-TEVA-486074USA

PATIENT
  Sex: Male

DRUGS (1)
  1. CLARAVIS [Suspect]
     Dosage: 60 MG EVERYDAY, 20 IN AM AND 40 PM
     Route: 048
     Dates: start: 20140512

REACTIONS (4)
  - Lip dry [Unknown]
  - Back pain [Unknown]
  - Anxiety [Unknown]
  - Alopecia [Unknown]
